FAERS Safety Report 16114762 (Version 1)
Quarter: 2019Q1

REPORT INFORMATION
  Report Type: Report from Study
  Country: GB (occurrence: GB)
  Receive Date: 20190325
  Receipt Date: 20190325
  Transmission Date: 20190418
  Serious: Yes (Other)
  Sender: FDA-Public Use
  Company Number: GB-JNJFOC-20190324632

PATIENT
  Sex: Female

DRUGS (2)
  1. STELARA [Suspect]
     Active Substance: USTEKINUMAB
     Indication: CROHN^S DISEASE
     Route: 058
     Dates: start: 20180927
  2. BUDENOFALK [Concomitant]
     Active Substance: BUDESONIDE
     Route: 065

REACTIONS (2)
  - Psychotic disorder [Unknown]
  - Salmonellosis [Unknown]
